FAERS Safety Report 17814070 (Version 6)
Quarter: 2022Q1

REPORT INFORMATION
  Report Type: Report from Study
  Country: US (occurrence: US)
  Receive Date: 20200521
  Receipt Date: 20220131
  Transmission Date: 20220423
  Serious: Yes (Hospitalization)
  Sender: FDA-Public Use
  Company Number: US-BRISTOL-MYERS SQUIBB COMPANY-BMS-2020-039163

PATIENT
  Age: 44 Year
  Sex: Female
  Weight: 92 kg

DRUGS (12)
  1. BMS-986299 [Suspect]
     Active Substance: BMS-986299
     Indication: Breast cancer
     Dosage: 2000 MICROGRAM
     Route: 036
     Dates: start: 20200303, end: 20200505
  2. NIVOLUMAB [Suspect]
     Active Substance: NIVOLUMAB
     Indication: Breast cancer
     Dosage: 480 MILLIGRAM
     Route: 042
     Dates: start: 20200303, end: 20200505
  3. IPILIMUMAB [Suspect]
     Active Substance: IPILIMUMAB
     Indication: Breast cancer
     Dosage: 92 MILLIGRAM
     Route: 042
     Dates: start: 20200303, end: 20200303
  4. ASCORBIC ACID [Concomitant]
     Active Substance: ASCORBIC ACID
     Indication: Product used for unknown indication
     Dosage: 1000 MILLIGRAM, TID
     Route: 048
     Dates: start: 20191015
  5. OMEPRAZOLE [Concomitant]
     Active Substance: OMEPRAZOLE
     Indication: Product used for unknown indication
     Dosage: 20 MILLIGRAM, ONCE
     Route: 048
     Dates: start: 20190312
  6. LORAZEPAM [Concomitant]
     Active Substance: LORAZEPAM
     Indication: Product used for unknown indication
     Dosage: 0.5 MILLIGRAM, ONCE
     Route: 048
     Dates: start: 20200309
  7. LIDOCAINE AND PRILOCAINE [Concomitant]
     Active Substance: LIDOCAINE\PRILOCAINE
     Indication: Product used for unknown indication
     Dosage: AS NEEDED
     Route: 061
     Dates: start: 20190318
  8. PREDNISONE [Concomitant]
     Active Substance: PREDNISONE
     Indication: Product used for unknown indication
     Dosage: 10 MILLIGRAM, QD
     Route: 048
     Dates: start: 20200413, end: 20201029
  9. ONDANSETRON [Concomitant]
     Active Substance: ONDANSETRON
     Indication: Product used for unknown indication
     Dosage: 4 MILLIGRAM, TID
     Route: 061
     Dates: start: 20190915
  10. BUDESONIDE [Concomitant]
     Active Substance: BUDESONIDE
     Indication: Product used for unknown indication
     Dosage: 6 MILLIGRAM ONCE
     Route: 048
     Dates: start: 20200426, end: 20200516
  11. PERFLUTREN [Concomitant]
     Active Substance: PERFLUTREN
     Indication: Product used for unknown indication
     Dosage: 10 ABSENT, ONCE
     Route: 042
     Dates: start: 20200115, end: 20200515
  12. VENLAFAXINE [Concomitant]
     Active Substance: VENLAFAXINE HYDROCHLORIDE
     Indication: Product used for unknown indication
     Dosage: 20 MILLIGRAM,ONCE
     Route: 048
     Dates: start: 20190921

REACTIONS (2)
  - Vomiting [Recovered/Resolved]
  - Diarrhoea [Recovered/Resolved]

NARRATIVE: CASE EVENT DATE: 20200514
